FAERS Safety Report 8535965-X (Version None)
Quarter: 2012Q3

REPORT INFORMATION
  Report Type: 
  Country: None (occurrence: None)
  Receive Date: 20120725
  Receipt Date: 20120723
  Transmission Date: 20120928
  Serious: Yes (Death)
  Sender: FDA-Public Use
  Company Number: PHHY2012AU057601

PATIENT
  Sex: Male

DRUGS (4)
  1. CLOPIDOGREL [Concomitant]
     Indication: HYPERTENSION
     Dosage: 75 MG,ONCE WEEKLY
     Route: 048
     Dates: start: 19920101
  2. ADALAT [Concomitant]
     Indication: HYPERTENSION
     Dosage: 30 MG, UNK
     Route: 048
     Dates: start: 19920101
  3. ZOLEDRONOC ACID [Suspect]
     Indication: OSTEOPOROSIS
     Dosage: 5 MG, UNK
     Route: 042
     Dates: start: 20110617
  4. SOTALOL HYDROCHLORIDE [Concomitant]
     Indication: HYPERTENSION
     Dosage: 10 MG, DAILY
     Route: 048
     Dates: start: 19920101

REACTIONS (1)
  - CARDIAC ARREST [None]
